FAERS Safety Report 7289112-5 (Version None)
Quarter: 2011Q1

REPORT INFORMATION
  Report Type: 
  Country: None (occurrence: None)
  Receive Date: 20110211
  Receipt Date: 20110207
  Transmission Date: 20110831
  Serious: Yes (Life-Threatening)
  Sender: FDA-Public Use
  Company Number: FR-ASTRAZENECA-2011SE07045

PATIENT
  Age: 47 Year
  Sex: Female

DRUGS (4)
  1. HYPNOVEL [Suspect]
     Route: 042
     Dates: start: 20101024, end: 20101024
  2. SUCCINYLCHOLINE CHLORIDE [Suspect]
     Route: 042
     Dates: start: 20101024, end: 20101024
  3. HYPNOMIDATE [Suspect]
     Route: 042
     Dates: start: 20101024, end: 20101024
  4. DIPRIVAN [Suspect]
     Route: 042
     Dates: start: 20101024, end: 20101024

REACTIONS (2)
  - SMALL INTESTINAL PERFORATION [None]
  - ANAPHYLACTIC SHOCK [None]
